FAERS Safety Report 16784795 (Version 6)
Quarter: 2020Q1

REPORT INFORMATION
  Report Type: Spontaneous
  Country: NL (occurrence: NL)
  Receive Date: 20190909
  Receipt Date: 20200131
  Transmission Date: 20200409
  Serious: Yes (Hospitalization, Other)
  Sender: FDA-Public Use
  Company Number: NL-009507513-1909NLD000673

PATIENT
  Age: 61 Year
  Sex: Male

DRUGS (1)
  1. BCG LIVE [Suspect]
     Active Substance: BACILLUS CALMETTE-GUERIN SUBSTRAIN TICE LIVE ANTIGEN
     Indication: BLADDER TRANSITIONAL CELL CARCINOMA RECURRENT
     Dosage: 5 INSTILLATIONS AFTER RECURRENCE PRIOR TO EVENTS
     Route: 043

REACTIONS (3)
  - Conjunctivitis [Recovered/Resolved]
  - Arthritis reactive [Recovered/Resolved]
  - Polyarthritis [Recovered/Resolved]
